APPROVED DRUG PRODUCT: AMANTADINE HYDROCHLORIDE
Active Ingredient: AMANTADINE HYDROCHLORIDE
Strength: 50MG/5ML
Dosage Form/Route: SYRUP;ORAL
Application: A073115 | Product #001
Applicant: TEVA PHARMACEUTICALS USA
Approved: Aug 23, 1991 | RLD: No | RS: No | Type: DISCN